FAERS Safety Report 14802568 (Version 1)
Quarter: 2018Q2

REPORT INFORMATION
  Report Type: Report from Study
  Country: US (occurrence: US)
  Receive Date: 20180424
  Receipt Date: 20180424
  Transmission Date: 20180711
  Serious: Yes (Hospitalization)
  Sender: FDA-Public Use
  Company Number: US-ACTELION-A-NJ2018-169796

PATIENT
  Age: 59 Year
  Sex: Female
  Weight: 146 kg

DRUGS (9)
  1. DIPHENHYDRAMINE. [Concomitant]
     Active Substance: DIPHENHYDRAMINE
     Dosage: 25 MG, QPM
     Route: 048
  2. FUROSEMIDE. [Concomitant]
     Active Substance: FUROSEMIDE
     Dosage: 20 MG, BID
     Route: 048
  3. REVATIO [Concomitant]
     Active Substance: SILDENAFIL CITRATE
     Dosage: 20 MG, TID
     Route: 048
  4. MULTI VITAMIN [Concomitant]
     Active Substance: VITAMINS
  5. UPTRAVI [Suspect]
     Active Substance: SELEXIPAG
     Indication: PULMONARY ARTERIAL HYPERTENSION
     Dosage: 200 MCG, BID
     Route: 048
     Dates: start: 2016
  6. OXYGEN. [Concomitant]
     Active Substance: OXYGEN
  7. FLONASE [Concomitant]
     Active Substance: FLUTICASONE PROPIONATE
     Dosage: 50 MCG, 2 SPRAYS
  8. FUROSEMIDE. [Concomitant]
     Active Substance: FUROSEMIDE
     Dosage: 80 MG, UNK
     Route: 042
  9. SPIRONOLACTONE. [Concomitant]
     Active Substance: SPIRONOLACTONE
     Dosage: 25 MG, BID
     Route: 048

REACTIONS (15)
  - Cardiomegaly [Recovering/Resolving]
  - Atrial fibrillation [Recovered/Resolved]
  - Hepatic congestion [Recovering/Resolving]
  - Constipation [Recovering/Resolving]
  - Interstitial lung disease [Recovering/Resolving]
  - Pulmonary hypertension [Unknown]
  - Blood pressure increased [Recovering/Resolving]
  - Fluid overload [Recovering/Resolving]
  - Generalised oedema [Recovering/Resolving]
  - Pericardial effusion [Recovering/Resolving]
  - Right atrial dilatation [Recovering/Resolving]
  - Hyponatraemia [Recovering/Resolving]
  - Weight decreased [Recovering/Resolving]
  - Drug dose omission [Recovering/Resolving]
  - Tricuspid valve incompetence [Recovering/Resolving]
